FAERS Safety Report 17185730 (Version 1)
Quarter: 2019Q4

REPORT INFORMATION
  Report Type: Spontaneous
  Country: US (occurrence: US)
  Receive Date: 20191220
  Receipt Date: 20191220
  Transmission Date: 20200122
  Serious: Yes (Other)
  Sender: FDA-Public Use
  Company Number: US-CUMBERLAND-2019-US-000036

PATIENT
  Age: 73 Year
  Sex: Male

DRUGS (1)
  1. KRISTALOSE [Suspect]
     Active Substance: LACTULOSE

REACTIONS (1)
  - Pneumatosis intestinalis [Recovered/Resolved]
